FAERS Safety Report 20935805 (Version 3)
Quarter: 2022Q3

REPORT INFORMATION
  Report Type: Report from Study
  Country: US (occurrence: US)
  Receive Date: 20220609
  Receipt Date: 20220808
  Transmission Date: 20221027
  Serious: No
  Sender: FDA-Public Use
  Company Number: US-NOVARTISTESTPH-NVSC2022US132367

PATIENT
  Sex: Female

DRUGS (3)
  1. COSENTYX [Suspect]
     Active Substance: SECUKINUMAB
     Indication: Psoriatic arthropathy
     Dosage: 300 MG
     Route: 058
     Dates: start: 202205
  2. COSENTYX [Suspect]
     Active Substance: SECUKINUMAB
     Dosage: 300 MG
     Route: 058
     Dates: start: 20220722
  3. COSENTYX [Suspect]
     Active Substance: SECUKINUMAB
     Dosage: 150 MG, Q2W
     Route: 058

REACTIONS (13)
  - SARS-CoV-2 test positive [Recovering/Resolving]
  - Diarrhoea [Recovering/Resolving]
  - Foot fracture [Unknown]
  - Arthralgia [Unknown]
  - Back pain [Unknown]
  - Pain [Unknown]
  - Bone pain [Unknown]
  - Peripheral swelling [Unknown]
  - Fatigue [Recovering/Resolving]
  - Musculoskeletal stiffness [Unknown]
  - Psoriasis [Recovering/Resolving]
  - Product use issue [Unknown]
  - Drug ineffective [Unknown]
